FAERS Safety Report 16836104 (Version 1)
Quarter: 2019Q3

REPORT INFORMATION
  Report Type: Report from Study
  Country: US (occurrence: US)
  Receive Date: 20190921
  Receipt Date: 20190921
  Transmission Date: 20191005
  Serious: No
  Sender: FDA-Public Use
  Company Number: PHEH2019US038557

PATIENT
  Age: 51 Year
  Sex: Female

DRUGS (1)
  1. SIGNIFOR LAR [Suspect]
     Active Substance: PASIREOTIDE
     Indication: ACROMEGALY
     Dosage: 60 MG, Q4W
     Route: 030

REACTIONS (3)
  - Metrorrhagia [Unknown]
  - Endometriosis [Unknown]
  - Excessive granulation tissue [Unknown]

NARRATIVE: CASE EVENT DATE: 20190817
